FAERS Safety Report 19021198 (Version 1)
Quarter: 2021Q1

REPORT INFORMATION
  Report Type: Spontaneous
  Country: NL (occurrence: NL)
  Receive Date: 20210317
  Receipt Date: 20210317
  Transmission Date: 20210420
  Serious: Yes (Disabling)
  Sender: FDA-Public Use
  Company Number: NL-ALLERGAN-2111245US

PATIENT
  Sex: Female
  Weight: 55 kg

DRUGS (3)
  1. METHYLFENIDAAT HCL [Concomitant]
     Dosage: CAPSULE MET GEREGULEERDE AFGIFTE, 5 MG (MILLIGRAM)
  2. BOTULINUM TOXIN TYPE A UNK [Suspect]
     Active Substance: BOTULINUM TOXIN TYPE A
     Indication: PRODUCT USED FOR UNKNOWN INDICATION
     Dosage: 1X PER 10 WEEK
     Dates: start: 20210105, end: 20210105
  3. BOTULINUM TOXIN TYPE A UNK [Suspect]
     Active Substance: BOTULINUM TOXIN TYPE A
     Dosage: 1X PER 10 WEEK
     Dates: start: 201904, end: 201904

REACTIONS (1)
  - Dizziness [Not Recovered/Not Resolved]

NARRATIVE: CASE EVENT DATE: 20191214
